FAERS Safety Report 10006675 (Version 1)
Quarter: 2014Q1

REPORT INFORMATION
  Report Type: Spontaneous
  Country: US (occurrence: None)
  Receive Date: 20140311
  Receipt Date: 20140311
  Transmission Date: 20141002
  Serious: Yes (Life-Threatening, Other)
  Sender: FDA-Public Use
  Company Number: 001683109A

PATIENT
  Age: 43 Year
  Sex: Female

DRUGS (5)
  1. PROACTIV + SKIN SMOOTHING EXFOLIATOR [Suspect]
     Indication: ACNE
     Dosage: ONCE DAILY DERMAL
     Dates: start: 20140215, end: 20140216
  2. PROACTIV + PORE TARGETING TREATMENT [Suspect]
     Indication: ACNE
  3. PROACTIV + COMPLEXION PERFECTING HYDRATOR [Suspect]
     Indication: ACNE
     Dosage: ONCE DAILY DERMAL
     Dates: start: 20140215, end: 20140216
  4. ZYRTEC [Concomitant]
  5. UNDISCLOSED OTC ACNE PREPARATION [Concomitant]

REACTIONS (7)
  - Swelling face [None]
  - Local swelling [None]
  - Eye swelling [None]
  - Pruritus [None]
  - Dyspnoea [None]
  - Swollen tongue [None]
  - Lip swelling [None]
